APPROVED DRUG PRODUCT: CYTARABINE
Active Ingredient: CYTARABINE
Strength: 20MG/ML
Dosage Form/Route: INJECTABLE;INJECTION
Application: A206189 | Product #001
Applicant: MEITHEAL PHARMACEUTICALS INC
Approved: Jun 26, 2020 | RLD: No | RS: No | Type: DISCN